FAERS Safety Report 21678658 (Version 3)
Quarter: 2022Q4

REPORT INFORMATION
  Report Type: Other
  Country: US (occurrence: US)
  Receive Date: 20221203
  Receipt Date: 20221216
  Transmission Date: 20230113
  Serious: Yes (Hospitalization, Other)
  Sender: FDA-Public Use
  Company Number: US-INTERCEPT-PM2022002148

PATIENT
  Sex: Female

DRUGS (3)
  1. OCALIVA [Suspect]
     Active Substance: OBETICHOLIC ACID
     Indication: Primary biliary cholangitis
     Dosage: 5 MILLIGRAM, QD
     Route: 048
     Dates: start: 20211216, end: 20220105
  2. OCALIVA [Suspect]
     Active Substance: OBETICHOLIC ACID
     Dosage: 5 MILLIGRAM, QD
     Route: 048
     Dates: start: 20220113, end: 2022
  3. OCALIVA [Suspect]
     Active Substance: OBETICHOLIC ACID
     Dosage: 5 MILLIGRAM, QD
     Route: 048
     Dates: start: 2022, end: 202211

REACTIONS (15)
  - Diverticulum intestinal [Unknown]
  - Cholelithiasis [Unknown]
  - Cholecystitis [Unknown]
  - Hyperbilirubinaemia [Unknown]
  - Chromaturia [Unknown]
  - Diarrhoea [Unknown]
  - Cough [Unknown]
  - Biliary dyskinesia [Unknown]
  - Food intolerance [Unknown]
  - Gastrooesophageal reflux disease [Unknown]
  - Gallbladder atrophy [Unknown]
  - Cholecystectomy [Recovered/Resolved]
  - Respiratory syncytial virus test positive [Unknown]
  - Hypertransaminasaemia [Unknown]
  - Pruritus [Unknown]

NARRATIVE: CASE EVENT DATE: 20220101
